FAERS Safety Report 10574672 (Version 2)
Quarter: 2014Q4

REPORT INFORMATION
  Report Type: Report from Study
  Country: JP (occurrence: JP)
  Receive Date: 20141110
  Receipt Date: 20141202
  Transmission Date: 20150529
  Serious: Yes (Death)
  Sender: FDA-Public Use
  Company Number: JP-PFIZER INC-2014305738

PATIENT
  Age: 72 Year
  Sex: Male
  Weight: 50.4 kg

DRUGS (15)
  1. FAMOTIDINE D [Concomitant]
     Active Substance: FAMOTIDINE
     Dosage: 20 MG, 1X/DAY
     Route: 048
     Dates: start: 20140530, end: 20140817
  2. RINDERON V [Concomitant]
     Active Substance: BETAMETHASONE VALERATE
     Dosage: 2 MG, 1X/DAY
     Route: 048
     Dates: start: 20140530, end: 20140807
  3. CRIZOTINIB [Suspect]
     Active Substance: CRIZOTINIB
     Indication: NON-SMALL CELL LUNG CANCER
     Dosage: 200 MG, 2X/DAY
     Route: 048
     Dates: start: 20140701, end: 20140807
  4. KENEI GARGLE [Concomitant]
     Dosage: 60 ML, 1X/DAY
     Dates: start: 20140731, end: 20140809
  5. REBAMIPIDE [Concomitant]
     Active Substance: REBAMIPIDE
     Dosage: 100 MG, 3X/DAY
     Route: 048
     Dates: start: 20140530, end: 20140817
  6. NEW LECICARBON [Concomitant]
     Active Substance: SODIUM BICARBONATE\SODIUM PHOSPHATE, MONOBASIC
     Dosage: 1 DF, AS NEEDED
     Dates: start: 20140811, end: 20140814
  7. LOXOPROFEN [Concomitant]
     Active Substance: LOXOPROFEN
     Dosage: 60 MG, AS NEEDED
     Route: 048
     Dates: start: 20140527, end: 20140808
  8. TS-1 [Concomitant]
     Active Substance: GIMERACIL\OTERACIL\TEGAFUR
     Dosage: 2 DF, 1X/DAY
     Route: 048
     Dates: start: 20140808, end: 20140818
  9. PICILLIBACTA [Concomitant]
     Active Substance: AMPICILLIN SODIUM\SULBACTAM SODIUM
     Dosage: 3 G, 1X/DAY
     Dates: start: 20140819, end: 20140819
  10. ISOSORBIDE [Concomitant]
     Active Substance: ISOSORBIDE
     Dosage: 30 ML, 3X/DAY
     Route: 048
     Dates: start: 20140808, end: 20140818
  11. BFLUID [Concomitant]
     Active Substance: AMINO ACIDS\DEXTROSE\ELECTROLYTES NOS\VITAMINS
     Dosage: 500 ML, 1X/DAY
     Dates: start: 20140624, end: 20140819
  12. TRAMCET [Concomitant]
     Active Substance: ACETAMINOPHEN\TRAMADOL
     Dosage: 1 DF, 3X/DAY
     Route: 048
     Dates: start: 20140530, end: 20140817
  13. MAGMITT [Concomitant]
     Active Substance: MAGNESIUM OXIDE
     Dosage: 330 MG, 3X/DAY
     Route: 048
     Dates: start: 20140620, end: 20140817
  14. HARTMANN [Concomitant]
     Active Substance: CALCIUM CHLORIDE\POTASSIUM CHLORIDE\SODIUM CHLORIDE\SODIUM LACTATE
     Dosage: 500 ML, 1X/DAY
     Dates: start: 20140815, end: 20140819
  15. EURODIN [Concomitant]
     Active Substance: ESTAZOLAM
     Dosage: 2 MG, AS NEEDED
     Route: 048
     Dates: start: 20140605, end: 20140811

REACTIONS (2)
  - Disease progression [Fatal]
  - Non-small cell lung cancer [Fatal]

NARRATIVE: CASE EVENT DATE: 20140819
